FAERS Safety Report 7690334-X (Version None)
Quarter: 2011Q3

REPORT INFORMATION
  Report Type: 
  Country: None (occurrence: None)
  Receive Date: 20110818
  Receipt Date: 20110808
  Transmission Date: 20111222
  Serious: Yes (Other)
  Sender: FDA-Public Use
  Company Number: CA-JNJFOC-20110607080

PATIENT
  Sex: Female
  Weight: 74 kg

DRUGS (3)
  1. METHADONE HYDROCHLORIDE [Concomitant]
  2. REMICADE [Suspect]
     Indication: CROHN'S DISEASE
     Route: 042
     Dates: start: 20080611
  3. NALOXONE [Concomitant]

REACTIONS (2)
  - GRAND MAL CONVULSION [None]
  - UTERINE LEIOMYOMA [None]
